FAERS Safety Report 6950598-4 (Version None)
Quarter: 2010Q3

REPORT INFORMATION
  Report Type: 
  Country: None (occurrence: None)
  Receive Date: 20100828
  Receipt Date: 20100215
  Transmission Date: 20110219
  Serious: No
  Sender: FDA-Public Use
  Company Number: US-ABBOTT-10P-163-0627098-00

PATIENT
  Sex: Male
  Weight: 103.51 kg

DRUGS (1)
  1. NIASPAN [Suspect]
     Indication: CORONARY ARTERIAL STENT INSERTION
     Dosage: EVERY EVENING
     Dates: start: 20100125

REACTIONS (2)
  - PRURITUS [None]
  - RASH [None]
